FAERS Safety Report 11996272 (Version 13)
Quarter: 2020Q3

REPORT INFORMATION
  Report Type: Report from Study
  Country: US (occurrence: US)
  Receive Date: 20160203
  Receipt Date: 20200724
  Transmission Date: 20201102
  Serious: Yes (Death, Hospitalization, Other)
  Sender: FDA-Public Use
  Company Number: US-ACTELION-A-US2015-123126

PATIENT
  Age: 75 Year
  Sex: Male

DRUGS (9)
  1. TADALAFIL. [Concomitant]
     Active Substance: TADALAFIL
  2. PREDNISONE. [Concomitant]
     Active Substance: PREDNISONE
     Dosage: UNK
     Dates: start: 20150807
  3. CEFTRIAXONE. [Concomitant]
     Active Substance: CEFTRIAXONE
     Dosage: UNK
     Dates: start: 20151117
  4. ADCIRCA [Concomitant]
     Active Substance: TADALAFIL
  5. AZITHROMYCIN ANHYDROUS. [Concomitant]
     Active Substance: AZITHROMYCIN ANHYDROUS
     Dosage: UNK
     Dates: start: 20151020
  6. LEVAQUIN [Concomitant]
     Active Substance: LEVOFLOXACIN
     Dosage: UNK
     Dates: start: 20150807
  7. DOXYCYCLINE. [Concomitant]
     Active Substance: DOXYCYCLINE
     Dosage: UNK
     Dates: start: 20150807
  8. OPSUMIT [Suspect]
     Active Substance: MACITENTAN
     Indication: PULMONARY ARTERIAL HYPERTENSION
     Dosage: 10 MG, QD
     Route: 048
     Dates: start: 20150626
  9. DEPO?MEDROL [Concomitant]
     Active Substance: METHYLPREDNISOLONE ACETATE
     Dosage: UNK
     Dates: start: 20150807

REACTIONS (24)
  - Acute sinusitis [Recovered/Resolved]
  - Colon cancer [Not Recovered/Not Resolved]
  - Ear infection [Unknown]
  - Hypercapnia [Recovered/Resolved]
  - Bladder operation [Unknown]
  - Bronchitis [Recovered/Resolved]
  - Diarrhoea [Recovered/Resolved]
  - Hypoxia [Recovered/Resolved]
  - Pyrexia [Recovered/Resolved]
  - Vision blurred [Not Recovered/Not Resolved]
  - Acute respiratory failure [Recovered/Resolved]
  - Myoclonus [Not Recovered/Not Resolved]
  - Blood iron decreased [Not Recovered/Not Resolved]
  - Back pain [Not Recovered/Not Resolved]
  - Pneumonia [Recovered/Resolved]
  - Hyperkalaemia [Recovered/Resolved]
  - Kidney infection [Unknown]
  - Bladder disorder [Unknown]
  - Ocular hyperaemia [Not Recovered/Not Resolved]
  - Haematuria [Unknown]
  - Haemoglobin decreased [Not Recovered/Not Resolved]
  - Chronic obstructive pulmonary disease [Fatal]
  - Eye pruritus [Not Recovered/Not Resolved]
  - Iron deficiency anaemia [Not Recovered/Not Resolved]

NARRATIVE: CASE EVENT DATE: 20150804
